FAERS Safety Report 9272810 (Version 1)
Quarter: 2013Q2

REPORT INFORMATION
  Report Type: Spontaneous
  Country: US (occurrence: US)
  Receive Date: 20130506
  Receipt Date: 20130506
  Transmission Date: 20140414
  Serious: Yes (Other)
  Sender: FDA-Public Use
  Company Number: US-ALEXION-A201300388

PATIENT
  Age: 27 Year
  Sex: Female
  Weight: 84.81 kg

DRUGS (5)
  1. SOLIRIS 300MG [Suspect]
     Indication: PAROXYSMAL NOCTURNAL HAEMOGLOBINURIA
     Dosage: UNK
     Route: 042
     Dates: start: 20070522
  2. SOLIRIS 300MG [Suspect]
     Dosage: 900 MG, EVERY 12 DAYS
     Route: 042
     Dates: start: 20130104
  3. SOLIRIS 300MG [Suspect]
     Dosage: 1200 MG, Q12D
     Route: 042
     Dates: start: 20130305
  4. ZOFRAN [Concomitant]
     Indication: PREGNANCY
  5. ENOXAPARIN [Concomitant]
     Indication: PREGNANCY
     Dosage: 40 MG, QD
     Route: 058

REACTIONS (5)
  - Haemoglobin decreased [Recovering/Resolving]
  - Chromaturia [Recovering/Resolving]
  - Blood lactate dehydrogenase increased [Unknown]
  - Reticulocyte count increased [Not Recovered/Not Resolved]
  - Haemolysis [Unknown]
